FAERS Safety Report 23924786 (Version 2)
Quarter: 2024Q4

REPORT INFORMATION
  Report Type: Report from Study
  Country: US (occurrence: US)
  Receive Date: 20240531
  Receipt Date: 20241024
  Transmission Date: 20250115
  Serious: No
  Sender: BAYER HEALTHCARE LLC
  Company Number: US-BAYER-2024A076753

PATIENT
  Age: 46 Year
  Sex: Female

DRUGS (2)
  1. CLARITIN [Suspect]
     Active Substance: LORATADINE
     Indication: Sinusitis
  2. CLARITIN [Suspect]
     Active Substance: LORATADINE
     Indication: Insomnia

REACTIONS (1)
  - Therapeutic response unexpected [Unknown]
